FAERS Safety Report 17532416 (Version 2)
Quarter: 2020Q1

REPORT INFORMATION
  Report Type: Spontaneous
  Country: AU (occurrence: AU)
  Receive Date: 20200312
  Receipt Date: 20200320
  Transmission Date: 20200409
  Serious: Yes (Life-Threatening, Hospitalization, Other)
  Sender: FDA-Public Use
  Company Number: AU-009507513-2003AUS004234

PATIENT
  Age: 67 Year
  Sex: Male

DRUGS (2)
  1. SIMVASTATIN. [Suspect]
     Active Substance: SIMVASTATIN
     Dosage: 80 MILLIGRAM, QD
     Route: 048
  2. CLARITHROMYCIN. [Interacting]
     Active Substance: CLARITHROMYCIN
     Indication: PROPHYLAXIS
     Dosage: 250 MILLIGRAM, QD

REACTIONS (5)
  - Rhabdomyolysis [Recovering/Resolving]
  - Contraindicated product administered [Unknown]
  - Drug interaction [Unknown]
  - Hyperkalaemia [Unknown]
  - Acute kidney injury [Recovering/Resolving]
